FAERS Safety Report 17670616 (Version 1)
Quarter: 2020Q2

REPORT INFORMATION
  Report Type: Spontaneous
  Country: US (occurrence: US)
  Receive Date: 20200415
  Receipt Date: 20200415
  Transmission Date: 20200713
  Serious: Yes (Death)
  Sender: FDA-Public Use
  Company Number: US-PFIZER INC-2020150140

PATIENT
  Age: 7 Year
  Sex: Male

DRUGS (3)
  1. DEMEROL [Suspect]
     Active Substance: MEPERIDINE HYDROCHLORIDE
     Indication: LOCAL ANAESTHESIA
     Dosage: 35 MG, UNK
     Route: 030
  2. COCAINE [Suspect]
     Active Substance: COCAINE
     Indication: LOCAL ANAESTHESIA
     Dosage: UNK (4 TO 5 ML, SPRAYED)
  3. XYLOCAINE [Suspect]
     Active Substance: LIDOCAINE HYDROCHLORIDE
     Indication: LOCAL ANAESTHESIA
     Dosage: UNK (SPRAY)

REACTIONS (6)
  - Cardiac arrest [Fatal]
  - Anoxia [Fatal]
  - Respiratory depression [Fatal]
  - Seizure [Fatal]
  - Cyanosis [Fatal]
  - Toxicity to various agents [Fatal]
